FAERS Safety Report 25328271 (Version 1)
Quarter: 2025Q2

REPORT INFORMATION
  Report Type: Report from Study
  Country: US (occurrence: US)
  Receive Date: 20250518
  Receipt Date: 20250518
  Transmission Date: 20250716
  Serious: Yes (Other)
  Sender: ABBVIE
  Company Number: US-ABBVIE-6284374

PATIENT
  Age: 39 Year
  Sex: Female

DRUGS (1)
  1. RINVOQ [Suspect]
     Active Substance: UPADACITINIB
     Indication: Product used for unknown indication
     Route: 048
     Dates: start: 20250412

REACTIONS (5)
  - Systemic lupus erythematosus [Unknown]
  - Stress [Unknown]
  - Hypersomnia [Unknown]
  - Crohn^s disease [Unknown]
  - Inappropriate schedule of product administration [Unknown]

NARRATIVE: CASE EVENT DATE: 20250101
